FAERS Safety Report 23339689 (Version 1)
Quarter: 2023Q4

REPORT INFORMATION
  Report Type: Spontaneous
  Country: CA (occurrence: None)
  Receive Date: 20231226
  Receipt Date: 20231226
  Transmission Date: 20240110
  Serious: Yes (Other)
  Sender: FDA-Public Use
  Company Number: 2023A290097

PATIENT
  Sex: Female

DRUGS (2)
  1. ROSUVASTATIN [Suspect]
     Active Substance: ROSUVASTATIN
     Indication: Arteriosclerosis
     Route: 058
  2. ATORVASTATIN CALCIUM [Suspect]
     Active Substance: ATORVASTATIN CALCIUM
     Indication: Arteriosclerosis
     Route: 058

REACTIONS (4)
  - Blood alkaline phosphatase increased [Unknown]
  - Hepatic enzyme increased [Unknown]
  - Myalgia [Unknown]
  - Smooth muscle antibody positive [Unknown]
